FAERS Safety Report 9457030 (Version 3)
Quarter: 2013Q4

REPORT INFORMATION
  Report Type: Spontaneous
  Country: US (occurrence: US)
  Receive Date: 20130814
  Receipt Date: 20131104
  Transmission Date: 20140711
  Serious: Yes (Hospitalization, Other)
  Sender: FDA-Public Use
  Company Number: US-BIOGENIDEC-2013BI073267

PATIENT
  Age: 45 Year
  Sex: Female

DRUGS (4)
  1. AVONEX [Suspect]
     Indication: MULTIPLE SCLEROSIS
     Route: 030
     Dates: start: 20021129, end: 20130616
  2. AVONEX [Suspect]
     Indication: MULTIPLE SCLEROSIS
     Route: 030
  3. BABY ASPIRIN [Concomitant]
     Indication: MYOCARDIAL INFARCTION
  4. EFFIENT [Concomitant]
     Indication: VENTRICULAR TACHYCARDIA

REACTIONS (28)
  - Thrombosis [Unknown]
  - Infection [Unknown]
  - Memory impairment [Not Recovered/Not Resolved]
  - Mobility decreased [Unknown]
  - Multiple sclerosis [Recovered/Resolved]
  - Multiple sclerosis relapse [Recovered/Resolved]
  - Pain [Recovered/Resolved]
  - Acute myocardial infarction [Recovered/Resolved]
  - Ventricular tachycardia [Recovered/Resolved]
  - Meningitis viral [Recovered/Resolved]
  - Coronary artery occlusion [Recovered/Resolved]
  - Hypoaesthesia [Recovered/Resolved]
  - Cold sweat [Recovered/Resolved]
  - General symptom [Recovered/Resolved]
  - Arterial disorder [Not Recovered/Not Resolved]
  - Device signal detection issue [Recovered/Resolved]
  - Blood pressure abnormal [Recovered/Resolved]
  - Vomiting [Recovered/Resolved]
  - Nausea [Recovered/Resolved]
  - Pain in extremity [Recovered/Resolved]
  - Heart rate increased [Recovered/Resolved]
  - Coronary artery dilatation [Not Recovered/Not Resolved]
  - Sedation [Recovered/Resolved]
  - Intervertebral disc displacement [Unknown]
  - Band sensation [Recovered/Resolved]
  - Neuralgia [Unknown]
  - Euphoric mood [Recovered/Resolved]
  - Asthenia [Not Recovered/Not Resolved]
